FAERS Safety Report 9647933 (Version 1)
Quarter: 2013Q4

REPORT INFORMATION
  Report Type: Spontaneous
  Country: US (occurrence: US)
  Receive Date: 20131028
  Receipt Date: 20131028
  Transmission Date: 20140711
  Serious: No
  Sender: FDA-Public Use
  Company Number: US-PFIZER INC-2013305048

PATIENT
  Age: 50 Year
  Sex: Female
  Weight: 77.1 kg

DRUGS (8)
  1. CELEBREX [Suspect]
     Indication: OSTEOARTHRITIS
     Dosage: 10 MG (BY CUTTING 20MG CELEBREX TABLET INTO HALF), SINGLE
     Route: 048
     Dates: start: 201309, end: 201309
  2. RANITIDINE [Concomitant]
     Indication: GASTRIC DISORDER
     Dosage: UNK
  3. LOPID [Concomitant]
     Indication: BLOOD TRIGLYCERIDES INCREASED
     Dosage: UNK
  4. LEVOXYL [Concomitant]
     Indication: HYPOTHYROIDISM
     Dosage: UNK
  5. NEXIUM [Concomitant]
     Dosage: 40 MG, AS NEEDED
  6. NAPROXEN [Concomitant]
     Indication: PAIN
     Dosage: 500 MG, AS NEEDED
  7. XANAX [Concomitant]
     Indication: ANXIETY
     Dosage: 1 MG, AS NEEDED
  8. XANAX [Concomitant]
     Indication: INSOMNIA

REACTIONS (5)
  - Incorrect dose administered [Unknown]
  - Hypersensitivity [Recovered/Resolved]
  - Palpitations [Recovered/Resolved]
  - Heart rate increased [Recovered/Resolved]
  - Chest discomfort [Recovered/Resolved]
